FAERS Safety Report 13702904 (Version 2)
Quarter: 2017Q3

REPORT INFORMATION
  Report Type: Spontaneous
  Country: CO (occurrence: CO)
  Receive Date: 20170629
  Receipt Date: 20170720
  Transmission Date: 20171127
  Serious: Yes (Death, Hospitalization, Other)
  Sender: FDA-Public Use
  Company Number: CO-ASTELLAS-2017US025608

PATIENT
  Age: 53 Year
  Sex: Male

DRUGS (3)
  1. FLUCONAZOLE. [Suspect]
     Active Substance: FLUCONAZOLE
     Indication: CRYPTOCOCCOSIS
     Route: 065
  2. AMPHOTERICIN B DEOXYCHOLATE [Suspect]
     Active Substance: AMPHOTERICIN B
     Indication: CRYPTOCOCCOSIS
     Route: 042
  3. [NO SUSPECT PRODUCT] [Suspect]
     Active Substance: UNSPECIFIED INGREDIENT

REACTIONS (2)
  - Off label use [Unknown]
  - Drug ineffective [Fatal]
